FAERS Safety Report 13559433 (Version 2)
Quarter: 2017Q2

REPORT INFORMATION
  Report Type: Report from Study
  Country: None (occurrence: BR)
  Receive Date: 20170518
  Receipt Date: 20170612
  Transmission Date: 20170830
  Serious: Yes (Hospitalization, Other)
  Sender: FDA-Public Use
  Company Number: BR-ABBVIE-17K-020-1967264-00

PATIENT
  Age: 68 Year
  Sex: Female
  Weight: 74 kg

DRUGS (21)
  1. BEROTEC [Concomitant]
     Active Substance: FENOTEROL HYDROBROMIDE
     Indication: FATIGUE
     Dosage: 10 TO 15 DROPS
     Route: 055
  2. SAFFLOWERS [Concomitant]
     Indication: PRODUCT USED FOR UNKNOWN INDICATION
     Route: 048
     Dates: end: 20170506
  3. IMECAP HAIR [Concomitant]
     Indication: ALOPECIA
     Dosage: PATIENT WILL USE 4 BOXES OF THE MEDICATION
     Route: 048
     Dates: start: 201703
  4. FORASEQ [Concomitant]
     Active Substance: BUDESONIDE\FORMOTEROL FUMARATE
     Indication: FATIGUE
     Dosage: FORM OF ADMINISTRATION: INHALATION/SPRAY
     Route: 048
  5. LOSARTAN. [Concomitant]
     Active Substance: LOSARTAN
     Indication: BLOOD PRESSURE MEASUREMENT
     Route: 048
  6. ALPRAZOLAM. [Concomitant]
     Active Substance: ALPRAZOLAM
     Indication: NERVOUSNESS
  7. HUMIRA [Suspect]
     Active Substance: ADALIMUMAB
     Indication: RHEUMATOID ARTHRITIS
     Route: 058
     Dates: start: 20170202, end: 20170417
  8. ATROVENT [Concomitant]
     Active Substance: IPRATROPIUM BROMIDE
     Indication: PULMONARY CONGESTION
     Route: 055
  9. ALPRAZOLAM. [Concomitant]
     Active Substance: ALPRAZOLAM
     Indication: PANIC ATTACK
     Route: 048
  10. AMLODIPINE [Concomitant]
     Active Substance: AMLODIPINE BESYLATE
     Indication: BLOOD PRESSURE MANAGEMENT
     Route: 048
  11. PANTOPRAZOL [Concomitant]
     Active Substance: PANTOPRAZOLE SODIUM
     Indication: GASTRIC DISORDER
     Route: 048
  12. DRAMAMINE [Concomitant]
     Active Substance: DIMENHYDRINATE
     Indication: HEADACHE
     Route: 048
  13. BOLDO LEAF [Concomitant]
     Active Substance: PEUMUS BOLDUS LEAF
     Indication: PRODUCT USED FOR UNKNOWN INDICATION
  14. HUMIRA [Suspect]
     Active Substance: ADALIMUMAB
     Route: 058
     Dates: start: 2017
  15. PANTOGAR [Concomitant]
     Active Substance: AMINOBENZOIC ACID\CALCIUM PANTOTHENATE\CYSTINE\KERATIN\THIAMINE MONONITRATE
     Indication: ALOPECIA
     Dosage: PATIENT WILL USE 2 BOXES OF THE MEDICATION
     Route: 048
     Dates: start: 201704
  16. DRAMAMINE [Concomitant]
     Active Substance: DIMENHYDRINATE
     Indication: NAUSEA
  17. TIORFAN [Concomitant]
     Active Substance: RACECADOTRIL
     Indication: DYSENTERY
     Route: 048
     Dates: start: 2013
  18. OMEPRAZOLE. [Concomitant]
     Active Substance: OMEPRAZOLE
     Indication: GASTRIC DISORDER
     Route: 048
  19. ALUMINUM HYDROXIDE. [Concomitant]
     Active Substance: ALUMINUM HYDROXIDE
     Indication: GASTRIC DISORDER
     Dosage: FORM OF ADMINISTRATION: LIQUID
     Route: 048
  20. MESALAZINE [Concomitant]
     Active Substance: MESALAMINE
     Indication: GASTROINTESTINAL DISORDER
     Route: 048
     Dates: start: 2013
  21. NEOSALDINA [Concomitant]
     Active Substance: CAFFEINE\ISOMETHEPTENE\METHIMAZOLE
     Indication: HEADACHE
     Route: 048

REACTIONS (16)
  - Musculoskeletal disorder [Unknown]
  - Increased bronchial secretion [Not Recovered/Not Resolved]
  - Pain in extremity [Recovering/Resolving]
  - Lung infection [Unknown]
  - Pneumonia [Recovering/Resolving]
  - Malaise [Unknown]
  - Asthenia [Unknown]
  - Decreased appetite [Unknown]
  - Dust allergy [Not Recovered/Not Resolved]
  - Peripheral swelling [Recovering/Resolving]
  - Insomnia [Unknown]
  - Cold sweat [Unknown]
  - Synovial rupture [Recovering/Resolving]
  - Muscle rupture [Recovering/Resolving]
  - Agitation [Unknown]
  - Dehydration [Unknown]

NARRATIVE: CASE EVENT DATE: 2017
